FAERS Safety Report 7619791 (Version 5)
Quarter: 2014Q1

REPORT INFORMATION
  Report Type: Spontaneous
  Country: JP (occurrence: JP)
  Receive Date: 20101007
  Receipt Date: 20140102
  Transmission Date: 20141002
  Serious: Yes (Other)
  Sender: FDA-Public Use
  Company Number: JP-BAYER-201014889BYL

PATIENT
  Age: 73 Year
  Sex: Female

DRUGS (4)
  1. NEXAVAR [Suspect]
     Indication: HEPATOCELLULAR CARCINOMA
     Dosage: 800 MG (DAILY DOSE), , ORAL
     Route: 048
     Dates: start: 20091212, end: 20100122
  2. NEXAVAR [Suspect]
     Indication: HEPATOCELLULAR CARCINOMA
     Dosage: DAILY DOSE 600 MG
     Route: 048
     Dates: start: 20100123
  3. URSODEOXYCHOLIC ACID [Concomitant]
     Route: 065
  4. URSODEOXYCHOLIC ACID [Concomitant]
     Route: 065

REACTIONS (5)
  - Hepatic function abnormal [Recovering/Resolving]
  - Hypertension [Recovering/Resolving]
  - Thrombocytopenia [Recovering/Resolving]
  - Palmar-plantar erythrodysaesthesia syndrome [Unknown]
  - Alopecia [Recovered/Resolved]
